FAERS Safety Report 9804677 (Version 2)
Quarter: 2014Q1

REPORT INFORMATION
  Report Type: Report from Study
  Country: US (occurrence: US)
  Receive Date: 20140108
  Receipt Date: 20140130
  Transmission Date: 20141002
  Serious: Yes (Other)
  Sender: FDA-Public Use
  Company Number: US-US-EMD SERONO, INC.-7260979

PATIENT
  Age: 57 Year
  Sex: Female

DRUGS (2)
  1. REBIF [Suspect]
     Indication: MULTIPLE SCLEROSIS
     Route: 058
     Dates: start: 20110525
  2. REBIF [Suspect]
     Route: 058
     Dates: start: 20131123

REACTIONS (3)
  - Intervertebral disc protrusion [Recovering/Resolving]
  - Synovial cyst [Recovering/Resolving]
  - Dyskinesia [Not Recovered/Not Resolved]
